FAERS Safety Report 19610520 (Version 1)
Quarter: 2021Q3

REPORT INFORMATION
  Report Type: Report from Study
  Country: US (occurrence: US)
  Receive Date: 20210726
  Receipt Date: 20210726
  Transmission Date: 20211014
  Serious: Yes (Hospitalization)
  Sender: FDA-Public Use
  Company Number: US-PROCTER+GAMBLE-PH21005598

PATIENT
  Age: 55 Year
  Sex: Female

DRUGS (9)
  1. HUMIRA [Suspect]
     Active Substance: ADALIMUMAB
     Indication: CROHN^S DISEASE
     Dosage: 160 MILLIGRAM, 1 /DAY
     Route: 058
     Dates: start: 20200605, end: 20200605
  2. MEDICATION [Concomitant]
     Active Substance: UNSPECIFIED INGREDIENT
     Indication: INSOMNIA
  3. HUMIRA [Suspect]
     Active Substance: ADALIMUMAB
     Indication: CROHN^S DISEASE
     Dosage: 40 MILLIGRAM, EVERY 2WK, 1 IN 2 WEEKS
     Route: 058
     Dates: start: 2020, end: 2020
  4. HUMIRA [Suspect]
     Active Substance: ADALIMUMAB
     Dosage: 40 MILLIGRAM, 1 /WEEK, 1 IN 7 DAYS
     Route: 058
     Dates: start: 20210101, end: 2021
  5. METAMUCIL [Suspect]
     Active Substance: PLANTAGO SEED
     Dosage: UNK
     Route: 048
  6. PREDNISONE. [Concomitant]
     Active Substance: PREDNISONE
     Dosage: 40 MILLIGRAM
  7. STEROIDS [Concomitant]
     Active Substance: UNSPECIFIED INGREDIENT
     Dosage: UNK
  8. MIRALAX [Suspect]
     Active Substance: POLYETHYLENE GLYCOL 3350
     Indication: BOWEL MOVEMENT IRREGULARITY
     Dosage: UNK
     Dates: start: 2021
  9. HUMIRA [Suspect]
     Active Substance: ADALIMUMAB
     Dosage: 80 MILLIGRAM, 1 /DAY
     Route: 058
     Dates: start: 20200619, end: 20200619

REACTIONS (21)
  - Diarrhoea [Unknown]
  - Pyrexia [Not Recovered/Not Resolved]
  - Anxiety [Unknown]
  - Frequent bowel movements [Recovered/Resolved]
  - Sleep disorder [Unknown]
  - Diarrhoea [Recovered/Resolved]
  - Constipation [Unknown]
  - Decreased appetite [Not Recovered/Not Resolved]
  - Depressed mood [Recovered/Resolved]
  - Abdominal pain upper [Recovering/Resolving]
  - Loss of personal independence in daily activities [Not Recovered/Not Resolved]
  - Headache [Recovering/Resolving]
  - Fatigue [Recovered/Resolved]
  - Insomnia [Recovered/Resolved]
  - Abdominal pain [Recovered/Resolved]
  - Diarrhoea [Recovered/Resolved]
  - Adverse food reaction [Unknown]
  - Intestinal obstruction [Unknown]
  - Adverse food reaction [Unknown]
  - Faeces soft [Not Recovered/Not Resolved]
  - Abdominal pain [Unknown]

NARRATIVE: CASE EVENT DATE: 2020
